FAERS Safety Report 6303769-4 (Version None)
Quarter: 2009Q3

REPORT INFORMATION
  Report Type: 
  Country: None (occurrence: None)
  Receive Date: 20090805
  Receipt Date: 20090723
  Transmission Date: 20100115
  Serious: Yes (Other)
  Sender: FDA-Public Use
  Company Number: 1-19265628

PATIENT
  Sex: Male

DRUGS (4)
  1. QUALAQUIN [Suspect]
     Indication: MUSCLE SPASMS
     Dosage: 324 MG DAILY, ORAL
     Route: 048
     Dates: start: 20070701
  2. ASPIRIN [Concomitant]
  3. LOVAZA [Concomitant]
  4. CENTRUM MULTIVITAMIN [Concomitant]

REACTIONS (2)
  - PRODUCT SUBSTITUTION ISSUE [None]
  - SKIN HAEMORRHAGE [None]
